FAERS Safety Report 6451502-8 (Version None)
Quarter: 2009Q4

REPORT INFORMATION
  Report Type: 
  Country: None (occurrence: None)
  Receive Date: 20091123
  Receipt Date: 20090723
  Transmission Date: 20100525
  Serious: No
  Sender: FDA-Public Use
  Company Number: US-BRISTOL-MYERS SQUIBB COMPANY-14705750

PATIENT
  Age: 6 Decade
  Sex: Male

DRUGS (1)
  1. AVALIDE [Suspect]
     Indication: HYPERTENSION
     Dosage: 1 DF= 300(UNIT NOT SPECIFIED)`
     Route: 048

REACTIONS (1)
  - DERMATITIS EXFOLIATIVE [None]
